FAERS Safety Report 9513694 (Version 1)
Quarter: 2013Q3

REPORT INFORMATION
  Report Type: Spontaneous
  Country: GB (occurrence: GB)
  Receive Date: 20130910
  Receipt Date: 20130910
  Transmission Date: 20140515
  Serious: Yes (Other)
  Sender: FDA-Public Use
  Company Number: GB-ABBOTT-13P-167-1142269-00

PATIENT
  Sex: Male

DRUGS (1)
  1. HUMIRA [Suspect]
     Indication: PSORIATIC ARTHROPATHY
     Route: 065
     Dates: start: 201304

REACTIONS (5)
  - Mobility decreased [Unknown]
  - Spinal column stenosis [Unknown]
  - Nerve root compression [Unknown]
  - Back disorder [Unknown]
  - Back pain [Unknown]
